FAERS Safety Report 18642162 (Version 1)
Quarter: 2020Q4

REPORT INFORMATION
  Report Type: Spontaneous
  Country: US (occurrence: US)
  Receive Date: 20201219
  Receipt Date: 20201219
  Transmission Date: 20210114
  Serious: No
  Sender: FDA-Public Use
  Company Number: None

PATIENT
  Age: 33 Year
  Sex: Male
  Weight: 80 kg

DRUGS (2)
  1. INSULIN DEGLUDEC [Concomitant]
     Active Substance: INSULIN DEGLUDEC
     Dates: start: 20191201, end: 20201219
  2. FIASP [Suspect]
     Active Substance: INSULIN ASPART

REACTIONS (2)
  - Blood glucose decreased [None]
  - Wrong product administered [None]

NARRATIVE: CASE EVENT DATE: 20201212
